FAERS Safety Report 5516666-9 (Version None)
Quarter: 2007Q4

REPORT INFORMATION
  Report Type: 
  Country: None (occurrence: None)
  Receive Date: 20071114
  Receipt Date: 20070412
  Transmission Date: 20080405
  Serious: No
  Sender: FDA-Public Use
  Company Number: A0646752A

PATIENT
  Age: 53 Year
  Sex: Male

DRUGS (1)
  1. COMMIT [Suspect]
     Dates: start: 20070411, end: 20070411

REACTIONS (4)
  - GLOSSODYNIA [None]
  - HICCUPS [None]
  - THROAT IRRITATION [None]
  - THROAT TIGHTNESS [None]
